FAERS Safety Report 10243814 (Version 1)
Quarter: 2014Q2

REPORT INFORMATION
  Report Type: Spontaneous
  Country: US (occurrence: None)
  Receive Date: 20140616
  Receipt Date: 20140616
  Transmission Date: 20141212
  Serious: Yes (Hospitalization)
  Sender: FDA-Public Use
  Company Number: None

PATIENT
  Age: 62 Year
  Sex: Male
  Weight: 83.92 kg

DRUGS (7)
  1. IRINOTECAN [Suspect]
     Indication: SMALL CELL LUNG CANCER
     Dosage: 125 MG/M2?DAY 2,8, 15?IV??THERAPY?5/12, 05/19
     Route: 042
  2. CARFILZOMIB [Suspect]
     Indication: SMALL CELL LUNG CANCER
     Dosage: 20 MG/M2/36 MG/M2 ?DAU 1,2,8,9,15,16?IV??THERAPY?05/12, 05/13, 05/19, 05/20
     Route: 042
  3. KLOR-CON [Concomitant]
  4. XANAX [Concomitant]
  5. PROCHLORPERAZINE [Concomitant]
  6. LOPERANIDE [Concomitant]
  7. PYRIDOXINE [Concomitant]

REACTIONS (10)
  - Dehydration [None]
  - Fatigue [None]
  - Diarrhoea [None]
  - Nausea [None]
  - Faecal incontinence [None]
  - Thrombocytopenia [None]
  - Hypokalaemia [None]
  - Neutropenia [None]
  - Malignant neoplasm progression [None]
  - Metastases to liver [None]
